FAERS Safety Report 9336436 (Version 1)
Quarter: 2013Q2

REPORT INFORMATION
  Report Type: Spontaneous
  Country: US (occurrence: US)
  Receive Date: 20130607
  Receipt Date: 20130607
  Transmission Date: 20140414
  Serious: No
  Sender: FDA-Public Use
  Company Number: US-009507513-1306USA002248

PATIENT
  Sex: Female

DRUGS (1)
  1. PROVENTIL [Suspect]
     Dosage: 2 DF, PRN(TWO PUFFS WHEN NEEDED)
     Route: 055
     Dates: start: 2005

REACTIONS (4)
  - Drug dose omission [Unknown]
  - Drug prescribing error [Unknown]
  - Product quality issue [Unknown]
  - No adverse event [Unknown]
